FAERS Safety Report 9068837 (Version 2)
Quarter: 2013Q4

REPORT INFORMATION
  Report Type: Spontaneous
  Country: FR (occurrence: FR)
  Receive Date: 20130215
  Receipt Date: 20131209
  Transmission Date: 20140711
  Serious: Yes (Hospitalization, Other)
  Sender: FDA-Public Use
  Company Number: FR-PFIZER INC-2013056803

PATIENT
  Age: 78 Year
  Sex: Female
  Weight: 58 kg

DRUGS (8)
  1. CORDARONE [Suspect]
     Indication: ATRIAL FIBRILLATION
     Dosage: 200 MG DAILY
     Route: 048
  2. PRADAXA [Suspect]
     Indication: ATRIAL FIBRILLATION
     Dosage: 150 MG TWICE DAILY
     Route: 048
     Dates: start: 201206, end: 20130114
  3. PRADAXA [Suspect]
     Indication: CEREBELLAR INFARCTION
  4. PREVISCAN [Concomitant]
     Indication: ATRIAL FIBRILLATION
     Dosage: UNK
     Dates: start: 200905, end: 201206
  5. PREVISCAN [Concomitant]
     Indication: CEREBELLAR INFARCTION
  6. ATACAND [Concomitant]
     Dosage: UNK
  7. CRESTOR [Concomitant]
     Dosage: UNK
  8. INEXIUM [Concomitant]
     Dosage: UNK

REACTIONS (3)
  - Rectal haemorrhage [Recovered/Resolved]
  - Glomerular filtration rate decreased [Unknown]
  - White blood cell count increased [Recovered/Resolved]
